FAERS Safety Report 7267038-0 (Version None)
Quarter: 2011Q1

REPORT INFORMATION
  Report Type: 
  Country: None (occurrence: None)
  Receive Date: 20110201
  Receipt Date: 20110120
  Transmission Date: 20110831
  Serious: Yes (Life-Threatening, Hospitalization, Other)
  Sender: FDA-Public Use
  Company Number: US-BAYER-2010-005354

PATIENT
  Sex: Female

DRUGS (4)
  1. ALBUTEROL [Concomitant]
     Dosage: UNK UNK, PRN
  2. AVELOX [Suspect]
     Indication: PNEUMONIA
     Dosage: DAILY DOSE 200 MG
     Route: 048
     Dates: start: 20100801
  3. DILANTIN [Concomitant]
  4. HYDROCORTISONE [Concomitant]

REACTIONS (8)
  - ATRIAL FIBRILLATION [None]
  - DIARRHOEA [None]
  - HEART RATE INCREASED [None]
  - VOMITING [None]
  - DYSPNOEA [None]
  - NAUSEA [None]
  - MULTI-ORGAN FAILURE [None]
  - HYPERSENSITIVITY [None]
